FAERS Safety Report 15756044 (Version 1)
Quarter: 2018Q4

REPORT INFORMATION
  Report Type: Report from Study
  Country: MX (occurrence: MX)
  Receive Date: 20181224
  Receipt Date: 20181224
  Transmission Date: 20190205
  Serious: Yes (Other)
  Sender: FDA-Public Use
  Company Number: PHHY2018MX193019

PATIENT
  Age: 46 Year
  Sex: Male

DRUGS (4)
  1. CO-DIOVAN [Suspect]
     Active Substance: HYDROCHLOROTHIAZIDE\VALSARTAN
     Indication: BLOOD PRESSURE INCREASED
     Dosage: 1 DF (HYDROCHLOROTHIAZIDE 25 MG, VALSARTAN 320 MG) , QD
     Route: 048
     Dates: start: 2017
  2. EUTIROX [Concomitant]
     Active Substance: LEVOTHYROXINE SODIUM
     Indication: THYROID DISORDER
     Dosage: 1 DF (150 MG DURING WEEKDAYS AND 200 MG DURING WEEKENDS), UNK (APPROXIMATELY 3 OR 4 YEARS AGO)
     Route: 065
     Dates: start: 2015
  3. DABEX [Concomitant]
     Indication: BLOOD INSULIN ABNORMAL
     Dosage: 2 DF, UNK
     Route: 065
     Dates: start: 20180101
  4. CO-DIOVAN [Suspect]
     Active Substance: HYDROCHLOROTHIAZIDE\VALSARTAN
     Dosage: 0.5 DF (HYDROCHLOROTHIAZIDE 25 MG, VALSARTAN 320 MG) , QD
     Route: 048
     Dates: start: 20180601

REACTIONS (7)
  - Haematemesis [Unknown]
  - Wrong technique in product usage process [Not Recovered/Not Resolved]
  - Product prescribing error [Not Recovered/Not Resolved]
  - Blood insulin increased [Unknown]
  - Blood viscosity increased [Unknown]
  - Fatigue [Unknown]
  - Sleep disorder [Not Recovered/Not Resolved]

NARRATIVE: CASE EVENT DATE: 20180201
